FAERS Safety Report 23385088 (Version 3)
Quarter: 2024Q1

REPORT INFORMATION
  Report Type: Report from Study
  Country: US (occurrence: US)
  Receive Date: 20240109
  Receipt Date: 20240219
  Transmission Date: 20240409
  Serious: Yes (Hospitalization, Other)
  Sender: FDA-Public Use
  Company Number: US-ABBVIE-5577415

PATIENT
  Sex: Female
  Weight: 66 kg

DRUGS (32)
  1. SKYRIZI [Suspect]
     Active Substance: RISANKIZUMAB-RZAA
     Indication: Psoriatic arthropathy
     Dosage: FORM STRENGTH: 150 MILLIGRAM
     Route: 058
     Dates: start: 202312
  2. SKYRIZI [Suspect]
     Active Substance: RISANKIZUMAB-RZAA
     Dosage: LAST ADMIN DATE- 2023?FORM STRENGTH: 150 MILLIGRAM
     Route: 058
     Dates: start: 20230807
  3. SKYRIZI [Suspect]
     Active Substance: RISANKIZUMAB-RZAA
     Dosage: LAST ADMIN DATE- 2023
     Route: 058
     Dates: start: 20230103
  4. FERUMOXYTOL [Concomitant]
     Active Substance: FERUMOXYTOL
     Indication: Product used for unknown indication
     Dosage: IRON INFUSION, LAST ADMIN DATE - 2023
     Dates: start: 20230110
  5. FERUMOXYTOL [Concomitant]
     Active Substance: FERUMOXYTOL
     Indication: Product used for unknown indication
     Dosage: IRON INFUSION
     Dates: start: 20230210
  6. EPIPEN [Concomitant]
     Active Substance: EPINEPHRINE
     Indication: Product used for unknown indication
     Dosage: TIME INTERVAL: AS NECESSARY
     Dates: start: 20230804
  7. CLOPIDOGREL [Concomitant]
     Active Substance: CLOPIDOGREL BISULFATE
     Indication: Product used for unknown indication
     Dosage: PLAVIX?FORM STRENGTH: 75 MILLIGRAM
     Dates: start: 20160601
  8. OMEGA 3 [Concomitant]
     Active Substance: CAPSAICIN
     Indication: Product used for unknown indication
     Dosage: FORM STRENGTH: 360 MILLIGRAM
  9. ATORVASTATIN [Concomitant]
     Active Substance: ATORVASTATIN
     Indication: Blood cholesterol
     Dosage: 40MG 2X DAY, RESTARTED 3/17/2022
     Dates: start: 20220317
  10. ATORVASTATIN [Concomitant]
     Active Substance: ATORVASTATIN
     Indication: Blood cholesterol
  11. RESTASIS [Concomitant]
     Active Substance: CYCLOSPORINE
     Indication: Dry eye
  12. COLCHICINE [Concomitant]
     Active Substance: COLCHICINE
     Indication: Product used for unknown indication
     Dosage: FORM STRENGTH: 0.6 MILLIGRAM
     Dates: start: 20230106, end: 202307
  13. HYDRALAZINE [Concomitant]
     Active Substance: HYDRALAZINE HYDROCHLORIDE
     Indication: Product used for unknown indication
     Dosage: TIME INTERVAL: AS NECESSARY: FORM STRENGTH: 25 MILLIGRAM
     Dates: start: 20230516
  14. NICORETTE [Concomitant]
     Active Substance: NICOTINE
     Indication: Product used for unknown indication
     Dosage: TIME INTERVAL: AS NECESSARY: FORM STRENGTH: 20 MILLIGRAM
  15. HYDROCORTISONE [Concomitant]
     Active Substance: HYDROCORTISONE
     Indication: Product used for unknown indication
     Dosage: FORM STRENGTH: 2.5 PERCENT
  16. SPIRONOLACTONE [Concomitant]
     Active Substance: SPIRONOLACTONE
     Indication: Product used for unknown indication
     Dosage: FORM STRENGTH: 25 MILLIGRAM
  17. SPIRONOLACTONE [Concomitant]
     Active Substance: SPIRONOLACTONE
     Indication: Product used for unknown indication
  18. FLUTICASONE PROPIONATE [Concomitant]
     Active Substance: FLUTICASONE PROPIONATE
     Indication: Hypersensitivity
     Dosage: TIME INTERVAL: AS NECESSARY
  19. FAMOTIDINE [Concomitant]
     Active Substance: FAMOTIDINE
     Indication: Product used for unknown indication
     Dosage: TIME INTERVAL: AS NECESSARY: FORM STRENGTH: 40 MILLIGRAM
     Dates: start: 20230514
  20. NORTRIPTYLINE [Concomitant]
     Active Substance: NORTRIPTYLINE
     Indication: Neuralgia
     Dates: start: 20220203
  21. FUROSEMIDE [Concomitant]
     Active Substance: FUROSEMIDE
     Indication: Product used for unknown indication
     Dosage: TIME INTERVAL: AS NECESSARY: ONCE PER DAY,?FORM STRENGTH: 20 MG
  22. XARELTO [Concomitant]
     Active Substance: RIVAROXABAN
     Indication: Product used for unknown indication
     Dates: end: 20230914
  23. ESTRADIOL [Concomitant]
     Active Substance: ESTRADIOL
     Indication: Product used for unknown indication
     Dosage: 1 INCH VAGINAL CREAM, ALT DAYS, 2X
  24. TRAZODONE [Concomitant]
     Active Substance: TRAZODONE HYDROCHLORIDE
     Indication: Product used for unknown indication
     Dosage: FORM STRENGTH: 100 MILLIGRAM
  25. CALCIUM [Concomitant]
     Active Substance: CALCIUM
     Indication: Product used for unknown indication
     Dosage: 500MG/1000IU
  26. TRAMADOL [Concomitant]
     Active Substance: TRAMADOL\TRAMADOL HYDROCHLORIDE
     Indication: Product used for unknown indication
     Dosage: TIME INTERVAL: AS NECESSARY: FORM STRENGTH: 37.5 MILLIGRAM
  27. ALPRAZOLAM [Concomitant]
     Active Substance: ALPRAZOLAM
     Indication: Product used for unknown indication
     Dosage: TIME INTERVAL: AS NECESSARY: FORM STRENGTH: 0.25 MILLIGRAM
  28. CARVEDILOL [Concomitant]
     Active Substance: CARVEDILOL
     Indication: Product used for unknown indication
     Dosage: 1 TAB AM- 1 TAB PM?FORM STRENGTH: 12.5 MILLIGRAM
     Route: 048
  29. FOLIC ACID [Concomitant]
     Active Substance: FOLIC ACID
     Indication: Product used for unknown indication
     Dosage: FORM STRENGTH: 1 MILLIGRAM
  30. LOSARTAN [Concomitant]
     Active Substance: LOSARTAN
     Indication: Product used for unknown indication
     Dates: start: 20180728
  31. LOSARTAN [Concomitant]
     Active Substance: LOSARTAN
     Indication: Product used for unknown indication
     Dates: start: 202307
  32. VITAMIN D [Concomitant]
     Active Substance: VITAMIN D NOS
     Indication: Product used for unknown indication

REACTIONS (12)
  - Lung squamous cell carcinoma stage I [Recovered/Resolved]
  - Hypotension [Recovered/Resolved]
  - Lung neoplasm malignant [Recovering/Resolving]
  - Urinary tract infection [Recovered/Resolved]
  - COVID-19 [Recovered/Resolved]
  - Hypertension [Not Recovered/Not Resolved]
  - Sneezing [Recovered/Resolved]
  - Blood sodium decreased [Recovered/Resolved]
  - Blood iron decreased [Recovered/Resolved]
  - SARS-CoV-2 test positive [Recovered/Resolved]
  - Blood magnesium decreased [Recovered/Resolved]
  - Pain [Recovered/Resolved]

NARRATIVE: CASE EVENT DATE: 20230101
